FAERS Safety Report 11012586 (Version 1)
Quarter: 2015Q2

REPORT INFORMATION
  Report Type: Spontaneous
  Country: US (occurrence: None)
  Receive Date: 20150410
  Receipt Date: 20150410
  Transmission Date: 20150821
  Serious: Yes (Disabling)
  Sender: FDA-Public Use
  Company Number: None

PATIENT
  Age: 67 Year
  Sex: Male
  Weight: 63.5 kg

DRUGS (8)
  1. METOPROLOL TARTRATE. [Concomitant]
     Active Substance: METOPROLOL TARTRATE
  2. TUMS [Concomitant]
     Active Substance: CALCIUM CARBONATE
  3. CLOPODOGREL [Concomitant]
  4. ASPIRIN. [Concomitant]
     Active Substance: ASPIRIN
  5. PRAVASTATIN [Concomitant]
     Active Substance: PRAVASTATIN\PRAVASTATIN SODIUM
  6. BUPROPION HCL XL [Concomitant]
     Active Substance: BUPROPION HYDROCHLORIDE
  7. METOPROLOL TARTRATE. [Suspect]
     Active Substance: METOPROLOL TARTRATE
     Indication: CARDIAC DISORDER
     Dosage: 1 PILL TWICE DAILY TAKEN BY MOUTH
     Route: 048
  8. METHYLPHENEDATE ER [Concomitant]

REACTIONS (9)
  - Myalgia [None]
  - Skin disorder [None]
  - Leukaemia [None]
  - Hypoaesthesia [None]
  - Muscle atrophy [None]
  - Asthenia [None]
  - Gait disturbance [None]
  - Pain in extremity [None]
  - Paraesthesia [None]

NARRATIVE: CASE EVENT DATE: 20150101
